FAERS Safety Report 13435337 (Version 1)
Quarter: 2017Q2

REPORT INFORMATION
  Report Type: Spontaneous
  Country: US (occurrence: US)
  Receive Date: 20170412
  Receipt Date: 20170412
  Transmission Date: 20170830
  Serious: No
  Sender: FDA-Public Use
  Company Number: US-SA-2016SA081491

PATIENT
  Age: 56 Year
  Sex: Female

DRUGS (2)
  1. ALLEGRA ALLERGY [Suspect]
     Active Substance: FEXOFENADINE HYDROCHLORIDE
     Indication: HYPERSENSITIVITY
     Dosage: STOPPED DATE 18 OR19 APR2016 AND TAKEN MOST PROBABLE
     Route: 048
     Dates: start: 20160416, end: 20160419
  2. ALLEGRA ALLERGY [Suspect]
     Active Substance: FEXOFENADINE HYDROCHLORIDE
     Indication: HYPERSENSITIVITY
     Dosage: STOPPED DATE 18 OR19 APR2016 AND TAKEN MOST PROBABLE
     Route: 048
     Dates: start: 20160416, end: 20160419

REACTIONS (3)
  - Throat irritation [Unknown]
  - Drug ineffective [Unknown]
  - Nasal pruritus [Unknown]
